FAERS Safety Report 7982019-7 (Version None)
Quarter: 2011Q4

REPORT INFORMATION
  Report Type: 
  Country: None (occurrence: None)
  Receive Date: 20111213
  Receipt Date: 20111129
  Transmission Date: 20120403
  Serious: Yes (Other)
  Sender: FDA-Public Use
  Company Number: 2011P1011032

PATIENT
  Age: 47 Year
  Sex: Male
  Weight: 122.4712 kg

DRUGS (27)
  1. ENDOCET (ACETAMINOPHEN AND OXYCODONE) (CON.) [Concomitant]
  2. LUNESTA (ESZOPICLONE) (CON.) [Concomitant]
  3. LISINOPRIL (CON.) [Concomitant]
  4. DEXTROAMP/AMPHET ER (CON.) [Concomitant]
  5. TESTOSTERONE DEPOT 200 MG (CON.) [Concomitant]
  6. KLOR-CON (CON.) [Concomitant]
  7. ZOLPIDEM (CON.) [Concomitant]
  8. ADVAIR DISK (FLUTICASONE/SALMETEROL) 500/50 (CON.) [Concomitant]
  9. DIVALPROEX ER 500 MG (CON.) [Concomitant]
  10. AMPHETAMINE SALTS (CON.) [Concomitant]
  11. ASPIRIN (CON.) [Concomitant]
  12. ROPINIROLE HCL (CON.) [Concomitant]
  13. PRIMIDONE (CON.) [Concomitant]
  14. FUROSEMIDE (CON.) [Concomitant]
  15. DEXILANT (DEXLANSOPRAZOLE) ER (CON.) [Concomitant]
  16. MIRTAZAPINE (CON.) [Concomitant]
  17. DEPAKOTE 500 MG (CON.) [Concomitant]
  18. TIGAN (TRIMETHOBENZAMIDE) (CON.) [Concomitant]
  19. INVEGA (PALIPERIDONE) (CON.) [Concomitant]
  20. BENZTROPINE (CON.) [Concomitant]
  21. CYMBALTA (DULOXETINE) (CON.) [Concomitant]
  22. FLUTICASONE (CON.) [Concomitant]
  23. SPIRIVA (TIOTROPIUM) (CON.) [Concomitant]
  24. FENTANYL [Suspect]
     Indication: SPINAL COMPRESSION FRACTURE
     Dosage: 1 PATCH;Q2D;TDER
     Route: 062
     Dates: start: 20111025, end: 20111119
  25. ALPRAZOLAM (CON.) [Concomitant]
  26. SIMVASTATIN (CON.) [Concomitant]
  27. COMBIVENT (ALBUTEROL/IPRATROPIUM) (CON.) [Concomitant]

REACTIONS (12)
  - FALL [None]
  - FEELING ABNORMAL [None]
  - COORDINATION ABNORMAL [None]
  - MEMORY IMPAIRMENT [None]
  - DEVICE LEAKAGE [None]
  - PRODUCT QUALITY ISSUE [None]
  - ACCIDENTAL EXPOSURE [None]
  - MOUTH INJURY [None]
  - LIP INJURY [None]
  - DYSARTHRIA [None]
  - LIP HAEMORRHAGE [None]
  - HYPERSOMNIA [None]
